FAERS Safety Report 7638655-0 (Version None)
Quarter: 2011Q3

REPORT INFORMATION
  Report Type: 
  Country: None (occurrence: None)
  Receive Date: 20110720
  Receipt Date: 20110708
  Transmission Date: 20111222
  Serious: Yes (Other)
  Sender: FDA-Public Use
  Company Number: 1000022228

PATIENT
  Age: 7 Year
  Sex: Female
  Weight: 36.6 kg

DRUGS (3)
  1. CITALOPRAM HYDROBROMIDE [Suspect]
     Dosage: TRANSPLACENTAL
     Route: 064
     Dates: start: 20030824, end: 20031002
  2. RIVOTRIL (CLNOAZEPAM) [Suspect]
     Dosage: TRANSPLACENTAL
     Route: 064
     Dates: start: 20030824, end: 20031002
  3. THERALENE (ALIMEMAZINE TARTRATE) [Suspect]
     Dosage: TRANSPLACENTAL
     Route: 064
     Dates: start: 20030824, end: 20031002

REACTIONS (7)
  - ABNORMAL BEHAVIOUR [None]
  - BULIMIA NERVOSA [None]
  - FATIGUE [None]
  - MATERNAL DRUGS AFFECTING FOETUS [None]
  - ENURESIS [None]
  - AGGRESSION [None]
  - POOR QUALITY SLEEP [None]
